FAERS Safety Report 5933263-1 (Version None)
Quarter: 2008Q4

REPORT INFORMATION
  Report Type: 
  Country: None (occurrence: None)
  Receive Date: 20081028
  Receipt Date: 20081020
  Transmission Date: 20090506
  Serious: Yes (Other)
  Sender: FDA-Public Use
  Company Number: US-B.I. PHARMACEUTICALS,INC./RIDGEFIELD-2008-BP-16229BP

PATIENT
  Age: 59 Year
  Sex: Male

DRUGS (7)
  1. MIRAPEX [Suspect]
     Indication: PARKINSON'S DISEASE
     Dosage: 3MG
     Route: 048
  2. CARBIDOPA AND LEVODOPA [Suspect]
     Route: 048
  3. ENTACAPONE [Suspect]
     Indication: TREMOR
     Dosage: 400MG
     Route: 048
  4. ENTACAPONE [Suspect]
     Indication: PARKINSON'S DISEASE
  5. LORATADINE [Suspect]
     Dosage: 10MG
     Route: 048
  6. TRIHEXYPHENIDYL HCL [Suspect]
     Dosage: 4MG
     Route: 048
  7. DOXYCYLCINE [Suspect]
     Dosage: 200MG

REACTIONS (5)
  - BLINDNESS [None]
  - DIPLOPIA [None]
  - LOSS OF CONSCIOUSNESS [None]
  - VISION BLURRED [None]
  - VISUAL ACUITY REDUCED [None]
